FAERS Safety Report 21531982 (Version 1)
Quarter: 2022Q4

REPORT INFORMATION
  Report Type: Report from Study
  Country: US (occurrence: US)
  Receive Date: 20221101
  Receipt Date: 20221101
  Transmission Date: 20230113
  Serious: No
  Sender: FDA-Public Use
  Company Number: US-ABBVIE-4148079

PATIENT
  Sex: Female

DRUGS (1)
  1. HUMIRA [Suspect]
     Active Substance: ADALIMUMAB
     Indication: Rheumatoid arthritis
     Dosage: CITRATE FREE
     Route: 058

REACTIONS (6)
  - Fall [Unknown]
  - Nasopharyngitis [Recovering/Resolving]
  - Tooth loss [Recovering/Resolving]
  - Vision blurred [Recovering/Resolving]
  - Rheumatoid arthritis [Recovering/Resolving]
  - Diarrhoea [Recovering/Resolving]
